FAERS Safety Report 10968323 (Version 1)
Quarter: 2015Q1

REPORT INFORMATION
  Report Type: Spontaneous
  Country: PT (occurrence: PT)
  Receive Date: 20150330
  Receipt Date: 20150330
  Transmission Date: 20150721
  Serious: Yes (Other)
  Sender: FDA-Public Use
  Company Number: PT-BAXTER-2015BAX015703

PATIENT
  Age: 69 Year
  Sex: Male

DRUGS (1)
  1. ENDOXAN [Suspect]
     Active Substance: CYCLOPHOSPHAMIDE
     Indication: MORVAN SYNDROME
     Route: 042

REACTIONS (2)
  - Autonomic nervous system imbalance [Recovered/Resolved]
  - Disease recurrence [Recovered/Resolved]
